FAERS Safety Report 23643959 (Version 1)
Quarter: 2024Q1

REPORT INFORMATION
  Report Type: Spontaneous
  Country: US (occurrence: US)
  Receive Date: 20240318
  Receipt Date: 20240318
  Transmission Date: 20240409
  Serious: No
  Sender: FDA-Public Use
  Company Number: US-JNJFOC-20240344046

PATIENT
  Age: 39 Year
  Sex: Female

DRUGS (3)
  1. OPSUMIT [Suspect]
     Active Substance: MACITENTAN
     Indication: Product used for unknown indication
     Route: 048
  2. TREPROSTINIL SODIUM [Suspect]
     Active Substance: TREPROSTINIL SODIUM
     Indication: Pulmonary arterial hypertension
     Route: 055
     Dates: start: 202203
  3. TADALAFIL [Suspect]
     Active Substance: TADALAFIL

REACTIONS (4)
  - Respiration abnormal [Unknown]
  - Nocturnal dyspnoea [Unknown]
  - Hypoaesthesia [Unknown]
  - Product dose omission issue [Unknown]
